FAERS Safety Report 4682099-0 (Version None)
Quarter: 2005Q2

REPORT INFORMATION
  Report Type: 
  Country: None (occurrence: None)
  Receive Date: 20050602
  Receipt Date: 20050523
  Transmission Date: 20051028
  Serious: Yes (Life-Threatening, Hospitalization)
  Sender: FDA-Public Use
  Company Number: APP200500268

PATIENT
  Age: 36 Year
  Sex: Female

DRUGS (3)
  1. PROFASI HP [Suspect]
     Indication: INFERTILITY
     Dosage: (FREQUENT OVER PAST 5 YEARS ), INJECTION
     Dates: start: 19960101, end: 20011001
  2. ORAL ESTROGEN (ESTROGNE NOS) [Suspect]
     Indication: INFERTILITY
     Dosage: (FOR THE PAST 5 YEARS), ORAL
     Route: 048
     Dates: start: 19960101, end: 20011001
  3. MENOTROPINS [Suspect]
     Indication: INFERTILITY
     Dosage: (FREQUENT INJECTION OVER PAST 5 YEARS), INJECTION
     Dates: start: 19960101, end: 20011001

REACTIONS (17)
  - ARTERY DISSECTION [None]
  - ASPARTATE AMINOTRANSFERASE INCREASED [None]
  - BLOOD LACTATE DEHYDROGENASE INCREASED [None]
  - C-REACTIVE PROTEIN INCREASED [None]
  - CARDIO-RESPIRATORY ARREST [None]
  - CEREBROVASCULAR DISORDER [None]
  - COMA [None]
  - HEADACHE [None]
  - HYPOPERFUSION [None]
  - LOSS OF CONSCIOUSNESS [None]
  - NAUSEA [None]
  - RENAL ARTERY DISSECTION [None]
  - RENAL ARTERY THROMBOSIS [None]
  - RENAL DISORDER [None]
  - RENAL INFARCT [None]
  - SUBARACHNOID HAEMORRHAGE [None]
  - VERTEBRAL ARTERY THROMBOSIS [None]
